FAERS Safety Report 16083633 (Version 6)
Quarter: 2019Q2

REPORT INFORMATION
  Report Type: Report from Study
  Country: GB (occurrence: GB)
  Receive Date: 20190318
  Receipt Date: 20190523
  Transmission Date: 20190711
  Serious: Yes (Hospitalization)
  Sender: FDA-Public Use
  Company Number: GB-EISAI MEDICAL RESEARCH-EC-2019-050471

PATIENT
  Age: 17 Year
  Sex: Female
  Weight: 50.9 kg

DRUGS (30)
  1. LENVATINIB [Suspect]
     Active Substance: LENVATINIB
     Dosage: SAME AS PRIOR DOSE
     Route: 048
     Dates: start: 20190325, end: 20190425
  2. SERTRALINE [Suspect]
     Active Substance: SERTRALINE HYDROCHLORIDE
     Route: 048
     Dates: start: 20190128
  3. COTRIMOXAZOLE [Concomitant]
     Active Substance: SULFAMETHOXAZOLE\TRIMETHOPRIM
  4. CETIRIZINE [Concomitant]
     Active Substance: CETIRIZINE HYDROCHLORIDE
  5. LENVATINIB [Suspect]
     Active Substance: LENVATINIB
     Route: 048
     Dates: start: 20190204, end: 20190307
  6. LENVATINIB [Suspect]
     Active Substance: LENVATINIB
     Route: 048
     Dates: start: 2019, end: 20190517
  7. SERTRALINE [Suspect]
     Active Substance: SERTRALINE HYDROCHLORIDE
     Indication: ANXIETY
     Route: 048
     Dates: end: 20190110
  8. PARACETAMOL [Concomitant]
     Active Substance: ACETAMINOPHEN
  9. RANITIDINE. [Concomitant]
     Active Substance: RANITIDINE
  10. LEVOTHYROXINE. [Concomitant]
     Active Substance: LEVOTHYROXINE
  11. LEVOMEPROMAZINE [Concomitant]
     Active Substance: LEVOMEPROMAZINE
  12. LORAZEPAM. [Concomitant]
     Active Substance: LORAZEPAM
  13. ETOPOSIDE. [Suspect]
     Active Substance: ETOPOSIDE
     Indication: OSTEOSARCOMA RECURRENT
     Route: 041
     Dates: start: 20181204, end: 20190314
  14. MOVICOL [Concomitant]
     Active Substance: POLYETHYLENE GLYCOL 3350\POTASSIUM CHLORIDE\SODIUM BICARBONATE\SODIUM CHLORIDE
  15. SODIUM PICOSULPHATE [Concomitant]
     Active Substance: SODIUM PICOSULFATE
  16. CHLORPHENAMINE [Concomitant]
     Active Substance: CHLORPHENIRAMINE MALEATE
  17. HYDROCORTISONE. [Concomitant]
     Active Substance: HYDROCORTISONE
  18. LENVATINIB [Suspect]
     Active Substance: LENVATINIB
     Indication: OSTEOSARCOMA RECURRENT
     Route: 048
     Dates: start: 20181204, end: 20190201
  19. IFOSFAMIDE. [Suspect]
     Active Substance: IFOSFAMIDE
     Indication: OSTEOSARCOMA RECURRENT
     Route: 041
     Dates: start: 20181204, end: 20190314
  20. MORPHINE [Concomitant]
     Active Substance: MORPHINE
  21. ONDANSETRAN [Concomitant]
     Active Substance: ONDANSETRON HYDROCHLORIDE
  22. FLUCONAZOLE. [Concomitant]
     Active Substance: FLUCONAZOLE
  23. NORTHISTERONE [Concomitant]
  24. SEVREDOL [Concomitant]
     Active Substance: MORPHINE
  25. CYCLIZINE [Concomitant]
     Active Substance: CYCLIZINE
  26. OMEPRAZOLE. [Concomitant]
     Active Substance: OMEPRAZOLE
  27. ANTACID OXETACAINE [Concomitant]
  28. LENVATINIB [Suspect]
     Active Substance: LENVATINIB
     Dosage: DOSE REDUCED
     Route: 048
     Dates: start: 20190312, end: 20190322
  29. PEPTAC [Concomitant]
     Active Substance: RANITIDINE HYDROCHLORIDE
  30. CANNABIS OIL [Concomitant]
     Active Substance: CANNABIS SATIVA SEED OIL

REACTIONS (8)
  - Epistaxis [Recovered/Resolved]
  - Vomiting [Recovered/Resolved]
  - Hypersensitivity [Recovered/Resolved]
  - Diarrhoea [Recovered/Resolved]
  - Abdominal pain [Recovering/Resolving]
  - Hypotension [Recovered/Resolved]
  - Gastroenteritis [Recovered/Resolved]
  - Febrile neutropenia [Recovered/Resolved]

NARRATIVE: CASE EVENT DATE: 20190110
